FAERS Safety Report 8084695-X (Version None)
Quarter: 2012Q1

REPORT INFORMATION
  Report Type: 
  Country: None (occurrence: None)
  Receive Date: 20120130
  Receipt Date: 20120120
  Transmission Date: 20120608
  Serious: Yes (Other)
  Sender: FDA-Public Use
  Company Number: US-ASTRAZENECA-2011SE77065

PATIENT
  Age: 55 Year
  Sex: Male
  Weight: 106.6 kg

DRUGS (7)
  1. SEROQUEL [Suspect]
     Route: 048
     Dates: start: 20111215
  2. VITAMIN D [Concomitant]
  3. SEROQUEL [Suspect]
     Indication: PSYCHOTIC DISORDER
     Route: 048
  4. ALTUDA [Concomitant]
     Indication: SEDATIVE THERAPY
     Route: 048
  5. SEROQUEL [Suspect]
     Indication: SCHIZOPHRENIA
     Route: 048
  6. SEROQUEL [Suspect]
     Route: 048
     Dates: start: 20111215
  7. METOTOPROL ER [Concomitant]
     Indication: CARDIOMEGALY
     Route: 048

REACTIONS (15)
  - HEPATIC CIRRHOSIS [None]
  - WEIGHT INCREASED [None]
  - DYSKINESIA [None]
  - HEPATIC STEATOSIS [None]
  - HEPATOMEGALY [None]
  - DIABETES MELLITUS [None]
  - MOOD ALTERED [None]
  - UNDERDOSE [None]
  - TREMOR [None]
  - OFF LABEL USE [None]
  - CONDITION AGGRAVATED [None]
  - MOVEMENT DISORDER [None]
  - MUSCLE TWITCHING [None]
  - HYPERLIPIDAEMIA [None]
  - OBESITY [None]
